FAERS Safety Report 6598907-2 (Version None)
Quarter: 2010Q1

REPORT INFORMATION
  Report Type: 
  Country: None (occurrence: None)
  Receive Date: 20100224
  Receipt Date: 20090211
  Transmission Date: 20100710
  Serious: No
  Sender: FDA-Public Use
  Company Number: US-BRISTOL-MYERS SQUIBB COMPANY-14500995

PATIENT
  Age: 36 Year
  Sex: Female

DRUGS (3)
  1. METFORMIN HCL [Suspect]
     Indication: BLOOD GLUCOSE INCREASED
     Route: 048
  2. LANTUS [Suspect]
     Indication: BLOOD GLUCOSE INCREASED
     Route: 048
  3. NOVOLOG [Suspect]
     Indication: BLOOD GLUCOSE INCREASED
     Route: 048

REACTIONS (2)
  - BLOOD GLUCOSE INCREASED [None]
  - WEIGHT DECREASED [None]
